FAERS Safety Report 25837943 (Version 1)
Quarter: 2025Q3

REPORT INFORMATION
  Report Type: Spontaneous
  Country: EU (occurrence: EU)
  Receive Date: 20250923
  Receipt Date: 20250923
  Transmission Date: 20251021
  Serious: Yes (Other)
  Sender: AMGEN
  Company Number: EU-AMGEN-FINSP2025184176

PATIENT
  Age: 30 Year
  Sex: Male

DRUGS (20)
  1. ADALIMUMAB [Suspect]
     Active Substance: ADALIMUMAB
     Indication: Arthritis bacterial
     Route: 065
  2. ADALIMUMAB [Suspect]
     Active Substance: ADALIMUMAB
     Indication: PASH syndrome
     Route: 065
  3. ADALIMUMAB [Suspect]
     Active Substance: ADALIMUMAB
     Route: 065
  4. ETANERCEPT [Suspect]
     Active Substance: ETANERCEPT
     Indication: Arthritis bacterial
     Dosage: 50 MILLIGRAM, QWK
     Route: 065
  5. ETANERCEPT [Suspect]
     Active Substance: ETANERCEPT
     Indication: PASH syndrome
  6. SECUKINUMAB [Concomitant]
     Active Substance: SECUKINUMAB
     Indication: Arthritis bacterial
     Dosage: UNK, Q4WK (150-300 MG)
  7. SECUKINUMAB [Concomitant]
     Active Substance: SECUKINUMAB
     Indication: PASH syndrome
  8. METHOTREXATE [Concomitant]
     Active Substance: METHOTREXATE
     Indication: Prophylaxis
     Dosage: 5 MILLIGRAM, QWK
  9. PREDNISOLONE [Concomitant]
     Active Substance: PREDNISOLONE
     Indication: Arthritis bacterial
  10. PREDNISOLONE [Concomitant]
     Active Substance: PREDNISOLONE
     Indication: PASH syndrome
  11. ISOTRETINOIN [Concomitant]
     Active Substance: ISOTRETINOIN
     Indication: Arthritis bacterial
  12. ISOTRETINOIN [Concomitant]
     Active Substance: ISOTRETINOIN
     Indication: PASH syndrome
  13. ACITRETIN [Concomitant]
     Active Substance: ACITRETIN
     Indication: Arthritis bacterial
  14. ACITRETIN [Concomitant]
     Active Substance: ACITRETIN
     Indication: PASH syndrome
  15. DAPSONE [Concomitant]
     Active Substance: DAPSONE
     Indication: Arthritis bacterial
  16. DAPSONE [Concomitant]
     Active Substance: DAPSONE
     Indication: PASH syndrome
  17. CLINDAMYCIN [Concomitant]
     Active Substance: CLINDAMYCIN
     Indication: Arthritis bacterial
     Route: 061
  18. CLINDAMYCIN [Concomitant]
     Active Substance: CLINDAMYCIN
     Indication: PASH syndrome
  19. CLOBETASOL [Concomitant]
     Active Substance: CLOBETASOL
     Indication: Arthritis bacterial
     Route: 061
  20. CLOBETASOL [Concomitant]
     Active Substance: CLOBETASOL
     Indication: PASH syndrome

REACTIONS (4)
  - Arthritis bacterial [Recovering/Resolving]
  - PASH syndrome [Recovering/Resolving]
  - Drug ineffective for unapproved indication [Unknown]
  - Off label use [Unknown]
